FAERS Safety Report 20431092 (Version 2)
Quarter: 2022Q1

REPORT INFORMATION
  Report Type: Spontaneous
  Country: US (occurrence: US)
  Receive Date: 20220204
  Receipt Date: 20220208
  Transmission Date: 20220424
  Serious: No
  Sender: FDA-Public Use
  Company Number: US-PFIZER INC-202101843989

PATIENT
  Age: 58 Year
  Sex: Female

DRUGS (2)
  1. NYVEPRIA [Suspect]
     Active Substance: PEGFILGRASTIM-APGF
     Dosage: UNK, AFTER EACH FOUR TREATMENTS OF DOXORUBICIN
     Dates: start: 202108
  2. ADRIAMYCIN [Concomitant]
     Active Substance: DOXORUBICIN HYDROCHLORIDE
     Indication: Breast cancer
     Dosage: UNK, FOUR TREATMENTS
     Dates: start: 202108

REACTIONS (3)
  - Dysphonia [Unknown]
  - Cognitive disorder [Unknown]
  - Thinking abnormal [Unknown]

NARRATIVE: CASE EVENT DATE: 20211117
